FAERS Safety Report 5789527-8 (Version None)
Quarter: 2008Q2

REPORT INFORMATION
  Report Type: 
  Country: None (occurrence: None)
  Receive Date: 20080626
  Receipt Date: 20080208
  Transmission Date: 20081010
  Serious: No
  Sender: FDA-Public Use
  Company Number: A0708264A

PATIENT
  Age: 30 Year
  Sex: Female
  Weight: 59.1 kg

DRUGS (2)
  1. ALLI [Suspect]
     Route: 048
     Dates: start: 20080124, end: 20080205
  2. HERBAL LIFE [Concomitant]
     Indication: SUPPLEMENTATION THERAPY

REACTIONS (1)
  - CONSTIPATION [None]
